FAERS Safety Report 9131442 (Version 1)
Quarter: 2013Q1

REPORT INFORMATION
  Report Type: Report from Study
  Country: US (occurrence: US)
  Receive Date: 20130301
  Receipt Date: 20130301
  Transmission Date: 20140127
  Serious: No
  Sender: FDA-Public Use
  Company Number: US-MYLANLABS-2012S1004896

PATIENT
  Age: 25 Year
  Sex: Male
  Weight: 92.53 kg

DRUGS (2)
  1. AMNESTEEM CAPSULES [Suspect]
     Indication: ACNE
     Dates: start: 20110921, end: 20120118
  2. TYLENOL [Concomitant]

REACTIONS (1)
  - Liver function test abnormal [Recovered/Resolved]
